FAERS Safety Report 8492689-5 (Version None)
Quarter: 2012Q3

REPORT INFORMATION
  Report Type: 
  Country: None (occurrence: None)
  Receive Date: 20120706
  Receipt Date: 20120705
  Transmission Date: 20120928
  Serious: Yes (Death)
  Sender: FDA-Public Use
  Company Number: GB-ABBOTT-12P-167-0953195-00

PATIENT
  Sex: Male

DRUGS (1)
  1. HUMIRA [Suspect]
     Indication: RHEUMATOID ARTHRITIS
     Route: 058
     Dates: start: 20070715, end: 20080515

REACTIONS (3)
  - RHEUMATOID ARTHRITIS [None]
  - ASTHENIA [None]
  - MOBILITY DECREASED [None]
